FAERS Safety Report 14323615 (Version 1)
Quarter: 2017Q4

REPORT INFORMATION
  Report Type: Other
  Country: DE (occurrence: DE)
  Receive Date: 20171226
  Receipt Date: 20171226
  Transmission Date: 20180321
  Serious: Yes (Hospitalization)
  Sender: FDA-Public Use
  Company Number: DE-GLENMARK PHARMACEUTICALS-2015GMK030165

PATIENT

DRUGS (10)
  1. PARACETAMOL [Suspect]
     Active Substance: ACETAMINOPHEN
     Indication: PREMEDICATION
     Dosage: 1 G, UNK
     Route: 048
     Dates: start: 20150928
  2. DEXAMETHASON                       /00016001/ [Concomitant]
     Active Substance: DEXAMETHASONE
     Indication: PREMEDICATION
     Dosage: 4 MG, UNK
     Route: 048
     Dates: start: 20150929, end: 20160216
  3. BENDAMUSTINE [Suspect]
     Active Substance: BENDAMUSTINE
     Indication: B-CELL LYMPHOMA
     Dosage: 135 MG, UNK
     Route: 042
     Dates: start: 20150929, end: 20160216
  4. MABTHERA [Suspect]
     Active Substance: RITUXIMAB
     Indication: B-CELL LYMPHOMA
     Dosage: UNK
     Route: 042
     Dates: start: 20150928, end: 20150928
  5. ONDANSETRON [Suspect]
     Active Substance: ONDANSETRON
     Indication: PREMEDICATION
     Dosage: 4 MG, UNK
     Route: 042
     Dates: start: 20150929, end: 20160216
  6. TAVEGIL                            /00137201/ [Suspect]
     Active Substance: CLEMASTINE FUMARATE
     Indication: PREMEDICATION
     Dosage: 2 MG, UNK
     Route: 042
     Dates: start: 20150928
  7. RITUXIMAB. [Suspect]
     Active Substance: RITUXIMAB
     Indication: B-CELL LYMPHOMA
     Dosage: 1400 MG, UNK
     Route: 058
     Dates: start: 20151026
  8. CIPROFLOXACIN. [Concomitant]
     Active Substance: CIPROFLOXACIN
     Indication: PRODUCT USED FOR UNKNOWN INDICATION
     Dosage: 500 MG, UNK
     Route: 065
     Dates: end: 20151121
  9. METOPROLOL. [Concomitant]
     Active Substance: METOPROLOL
     Indication: HYPERTENSION
     Dosage: 47.5 MG, UNK
     Route: 048
     Dates: start: 20091007
  10. PREDNISOLON                        /00016201/ [Concomitant]
     Active Substance: PREDNISOLONE
     Indication: PREMEDICATION
     Dosage: 75 MG, UNK
     Route: 042
     Dates: start: 20150928

REACTIONS (4)
  - Orthostatic intolerance [Recovered/Resolved]
  - Cough [Recovered/Resolved]
  - Leukopenia [Recovered/Resolved]
  - Pneumonia [Recovered/Resolved]

NARRATIVE: CASE EVENT DATE: 20151030
